FAERS Safety Report 25669488 (Version 1)
Quarter: 2025Q3

REPORT INFORMATION
  Report Type: Spontaneous
  Country: US (occurrence: US)
  Receive Date: 20250812
  Receipt Date: 20250812
  Transmission Date: 20251020
  Serious: Yes (Hospitalization)
  Sender: MYLAN
  Company Number: US-MYLANLABS-2025M1066591

PATIENT
  Age: 12 Year
  Sex: Female

DRUGS (64)
  1. CETIRIZINE [Suspect]
     Active Substance: CETIRIZINE HYDROCHLORIDE
     Indication: Chronic spontaneous urticaria
  2. CETIRIZINE [Suspect]
     Active Substance: CETIRIZINE HYDROCHLORIDE
     Route: 065
  3. CETIRIZINE [Suspect]
     Active Substance: CETIRIZINE HYDROCHLORIDE
     Route: 065
  4. CETIRIZINE [Suspect]
     Active Substance: CETIRIZINE HYDROCHLORIDE
  5. HYDROCORTISONE [Suspect]
     Active Substance: HYDROCORTISONE
     Indication: Allergy prophylaxis
  6. HYDROCORTISONE [Suspect]
     Active Substance: HYDROCORTISONE
     Route: 065
  7. HYDROCORTISONE [Suspect]
     Active Substance: HYDROCORTISONE
     Route: 065
  8. HYDROCORTISONE [Suspect]
     Active Substance: HYDROCORTISONE
  9. DOXYCYCLINE [Suspect]
     Active Substance: DOXYCYCLINE
     Indication: Marginal zone lymphoma
     Dosage: 100 MILLIGRAM, BID
  10. DOXYCYCLINE [Suspect]
     Active Substance: DOXYCYCLINE
     Dosage: 100 MILLIGRAM, BID
  11. DOXYCYCLINE [Suspect]
     Active Substance: DOXYCYCLINE
     Dosage: 100 MILLIGRAM, BID
     Route: 065
  12. DOXYCYCLINE [Suspect]
     Active Substance: DOXYCYCLINE
     Dosage: 100 MILLIGRAM, BID
     Route: 065
  13. DOXYCYCLINE [Suspect]
     Active Substance: DOXYCYCLINE
     Dosage: 100 MILLIGRAM, QID
  14. DOXYCYCLINE [Suspect]
     Active Substance: DOXYCYCLINE
     Dosage: 100 MILLIGRAM, QID
  15. DOXYCYCLINE [Suspect]
     Active Substance: DOXYCYCLINE
     Dosage: 100 MILLIGRAM, QID
     Route: 065
  16. DOXYCYCLINE [Suspect]
     Active Substance: DOXYCYCLINE
     Dosage: 100 MILLIGRAM, QID
     Route: 065
  17. TRIAMCINOLONE ACETONIDE [Suspect]
     Active Substance: TRIAMCINOLONE ACETONIDE
     Indication: Chronic spontaneous urticaria
  18. TRIAMCINOLONE ACETONIDE [Suspect]
     Active Substance: TRIAMCINOLONE ACETONIDE
     Route: 026
  19. TRIAMCINOLONE ACETONIDE [Suspect]
     Active Substance: TRIAMCINOLONE ACETONIDE
     Route: 026
  20. TRIAMCINOLONE ACETONIDE [Suspect]
     Active Substance: TRIAMCINOLONE ACETONIDE
  21. FEXOFENADINE [Suspect]
     Active Substance: FEXOFENADINE HYDROCHLORIDE
     Indication: Chronic spontaneous urticaria
  22. FEXOFENADINE [Suspect]
     Active Substance: FEXOFENADINE HYDROCHLORIDE
     Route: 065
  23. FEXOFENADINE [Suspect]
     Active Substance: FEXOFENADINE HYDROCHLORIDE
     Route: 065
  24. FEXOFENADINE [Suspect]
     Active Substance: FEXOFENADINE HYDROCHLORIDE
  25. MONTELUKAST [Suspect]
     Active Substance: MONTELUKAST
     Indication: Chronic spontaneous urticaria
  26. MONTELUKAST [Suspect]
     Active Substance: MONTELUKAST
     Route: 065
  27. MONTELUKAST [Suspect]
     Active Substance: MONTELUKAST
     Route: 065
  28. MONTELUKAST [Suspect]
     Active Substance: MONTELUKAST
  29. MOMETASONE [Suspect]
     Active Substance: MOMETASONE
     Indication: Chronic spontaneous urticaria
  30. MOMETASONE [Suspect]
     Active Substance: MOMETASONE
     Route: 061
  31. MOMETASONE [Suspect]
     Active Substance: MOMETASONE
     Route: 061
  32. MOMETASONE [Suspect]
     Active Substance: MOMETASONE
  33. CLOBETASOL [Suspect]
     Active Substance: CLOBETASOL
     Indication: Chronic spontaneous urticaria
  34. CLOBETASOL [Suspect]
     Active Substance: CLOBETASOL
     Route: 061
  35. CLOBETASOL [Suspect]
     Active Substance: CLOBETASOL
     Route: 061
  36. CLOBETASOL [Suspect]
     Active Substance: CLOBETASOL
  37. DIPHENHYDRAMINE [Suspect]
     Active Substance: DIPHENHYDRAMINE
     Indication: Allergy prophylaxis
  38. DIPHENHYDRAMINE [Suspect]
     Active Substance: DIPHENHYDRAMINE
     Route: 065
  39. DIPHENHYDRAMINE [Suspect]
     Active Substance: DIPHENHYDRAMINE
     Route: 065
  40. DIPHENHYDRAMINE [Suspect]
     Active Substance: DIPHENHYDRAMINE
  41. RANITIDINE [Concomitant]
     Active Substance: RANITIDINE
     Indication: Product used for unknown indication
  42. RANITIDINE [Concomitant]
     Active Substance: RANITIDINE
     Route: 065
  43. RANITIDINE [Concomitant]
     Active Substance: RANITIDINE
     Route: 065
  44. RANITIDINE [Concomitant]
     Active Substance: RANITIDINE
  45. ACETAMINOPHEN [Concomitant]
     Active Substance: ACETAMINOPHEN
     Indication: Product used for unknown indication
  46. ACETAMINOPHEN [Concomitant]
     Active Substance: ACETAMINOPHEN
     Route: 065
  47. ACETAMINOPHEN [Concomitant]
     Active Substance: ACETAMINOPHEN
     Route: 065
  48. ACETAMINOPHEN [Concomitant]
     Active Substance: ACETAMINOPHEN
  49. RITUXIMAB [Concomitant]
     Active Substance: RITUXIMAB
     Indication: Marginal zone lymphoma
  50. RITUXIMAB [Concomitant]
     Active Substance: RITUXIMAB
     Route: 065
  51. RITUXIMAB [Concomitant]
     Active Substance: RITUXIMAB
     Route: 065
  52. RITUXIMAB [Concomitant]
     Active Substance: RITUXIMAB
  53. EPINEPHRINE [Concomitant]
     Active Substance: EPINEPHRINE
     Indication: Anaphylactic reaction
  54. EPINEPHRINE [Concomitant]
     Active Substance: EPINEPHRINE
  55. EPINEPHRINE [Concomitant]
     Active Substance: EPINEPHRINE
     Route: 042
  56. EPINEPHRINE [Concomitant]
     Active Substance: EPINEPHRINE
     Route: 042
  57. EPINEPHRINE [Concomitant]
     Active Substance: EPINEPHRINE
  58. EPINEPHRINE [Concomitant]
     Active Substance: EPINEPHRINE
  59. EPINEPHRINE [Concomitant]
     Active Substance: EPINEPHRINE
     Route: 030
  60. EPINEPHRINE [Concomitant]
     Active Substance: EPINEPHRINE
     Route: 030
  61. METHYLPREDNISOLONE [Concomitant]
     Active Substance: METHYLPREDNISOLONE
     Indication: Anaphylactic reaction
  62. METHYLPREDNISOLONE [Concomitant]
     Active Substance: METHYLPREDNISOLONE
     Route: 065
  63. METHYLPREDNISOLONE [Concomitant]
     Active Substance: METHYLPREDNISOLONE
     Route: 065
  64. METHYLPREDNISOLONE [Concomitant]
     Active Substance: METHYLPREDNISOLONE

REACTIONS (3)
  - Drug ineffective [Unknown]
  - Urticaria [Recovering/Resolving]
  - Off label use [Unknown]
